FAERS Safety Report 23642022 (Version 1)
Quarter: 2024Q1

REPORT INFORMATION
  Report Type: Spontaneous
  Country: TW (occurrence: TW)
  Receive Date: 20240318
  Receipt Date: 20240318
  Transmission Date: 20240410
  Serious: Yes (Other)
  Sender: FDA-Public Use
  Company Number: TW-STRIDES ARCOLAB LIMITED-2024SP003068

PATIENT
  Sex: Female

DRUGS (12)
  1. AMLODIPINE [Suspect]
     Active Substance: AMLODIPINE BESYLATE
     Indication: Product used for unknown indication
     Dosage: UNK (THE PATIENT^S MOTHER RECEIVED AMLODIPINE FOR CHRONIC HYPERTENSION DURING PREGNANCY)
     Route: 064
  2. PREDNISOLONE [Suspect]
     Active Substance: PREDNISOLONE
     Indication: Product used for unknown indication
     Dosage: UNK (THE PATIENT^S MOTHER RECEIVED PREDNISOLONE AS AN IMMUNOSUPPRESSANT DRUG THERAPY FOR KIDNEY TRAN
     Route: 064
  3. PREDNISOLONE [Suspect]
     Active Substance: PREDNISOLONE
     Dosage: UNK (THE PATIENT^S MOTHER RECEIVED PREDNISOLONE 2.5 MILLIGRAM/DAY AS AN IMMUNOSUPPRESSANT DRUG THERA
     Route: 064
  4. TACROLIMUS [Suspect]
     Active Substance: TACROLIMUS
     Indication: Product used for unknown indication
     Dosage: UNK (THE PATIENT^S MOTHER RECEIVED TACROLIMUS AS AN IMMUNOSUPPRESSANT DRUG THERAPY FOR KIDNEY TRANSP
     Route: 064
  5. TACROLIMUS [Suspect]
     Active Substance: TACROLIMUS
     Dosage: UNK (THE PATIENT^S MOTHER RECEIVED TACROLIMUS 12 MILLIGRAM/DAY AS AN IMMUNOSUPPRESSANT DRUG THERAPY
     Route: 064
  6. TACROLIMUS [Suspect]
     Active Substance: TACROLIMUS
     Dosage: UNK (THE PATIENT^S MOTHER RECEIVED TACROLIMUS 11 MILLIGRAM/DAY AS AN IMMUNOSUPPRESSANT DRUG THERAPY
     Route: 064
  7. BISOPROLOL [Suspect]
     Active Substance: BISOPROLOL\BISOPROLOL FUMARATE
     Indication: Product used for unknown indication
     Dosage: UNK (THE PATIENT^S MOTHER RECEIVED BISOPROLOL FOR CHRONIC HYPERTENSION DURING PREGNANCY)
     Route: 064
  8. INSULIN NOS [Suspect]
     Active Substance: INSULIN NOS
     Indication: Product used for unknown indication
     Dosage: UNK (THE PATIENT^S MOTHER RECEIVED INSULIN FOR TYPE?1 DIABETES MELLITUS DURING PREGNANCY)
     Route: 064
  9. LANSOPRAZOLE [Suspect]
     Active Substance: LANSOPRAZOLE
     Indication: Product used for unknown indication
     Dosage: UNK (THE PATIENT^S MOTHER RECEIVED LANSOPRAZOLE DURING PREGNANCY)
     Route: 064
  10. ASPIRIN [Suspect]
     Active Substance: ASPIRIN
     Indication: Product used for unknown indication
     Dosage: UNK (THE PATIENT^S MOTHER RECEIVED ASPIRIN DURING PREGNANCY)
     Route: 064
  11. EVEROLIMUS [Suspect]
     Active Substance: EVEROLIMUS
     Indication: Product used for unknown indication
     Dosage: UNK (THE PATIENT^S MOTHER RECEIVED EVEROLIMUS 2.5 MILLIGRAM/DAY AS AN IMMUNOSUPPRESSANT DRUG THERAPY
     Route: 064
  12. EVEROLIMUS [Suspect]
     Active Substance: EVEROLIMUS
     Dosage: UNK (THE PATIENT^S MOTHER RECEIVED EVEROLIMUS 1.5 MILLIGRAM/DAY AS AN IMMUNOSUPPRESSANT DRUG THERAPY
     Route: 064

REACTIONS (3)
  - Premature baby [Unknown]
  - Low birth weight baby [Unknown]
  - Foetal exposure during pregnancy [Unknown]
